FAERS Safety Report 9191349 (Version 1)
Quarter: 2013Q1

REPORT INFORMATION
  Report Type: Spontaneous
  Country: US (occurrence: US)
  Receive Date: 20130326
  Receipt Date: 20130326
  Transmission Date: 20140127
  Serious: Yes (Hospitalization)
  Sender: FDA-Public Use
  Company Number: US-BAYER-2013-035594

PATIENT
  Age: 68 Year
  Sex: Male

DRUGS (20)
  1. BAYER GENUINE ASPIRIN ORIGINAL STRENGTH [Suspect]
  2. SAXAGLIPTIN [Suspect]
     Indication: TYPE 2 DIABETES MELLITUS
     Dosage: UNK
     Dates: start: 20110317
  3. METFORMIN HCL [Suspect]
     Indication: TYPE 2 DIABETES MELLITUS
     Dosage: DAILY DOSE 1000 MG
     Dates: start: 20120105
  4. LANTUS [Suspect]
     Indication: TYPE 2 DIABETES MELLITUS
     Dosage: DAILY DOSE 110 IU
  5. NOVOLOG [Suspect]
     Indication: TYPE 2 DIABETES MELLITUS
     Dosage: DAILY DOSE 240 IU
     Dates: start: 20110321
  6. PLACEBO [Suspect]
     Indication: TYPE 2 DIABETES MELLITUS
     Dosage: UNK
     Dates: start: 20110317
  7. SULFAMETHOXAZOLE W/TRIMETHOPRIM [Concomitant]
     Dosage: UNK
     Dates: start: 20120702
  8. METOLAZONE [Concomitant]
     Dosage: UNK
     Dates: start: 20120702
  9. DAPTOMYCIN [Concomitant]
     Dosage: UNK
     Dates: start: 20120802
  10. CLINDAMYCIN [Concomitant]
     Dosage: UNK
     Dates: start: 20120820
  11. LEVOFLOXACIN [Concomitant]
     Dosage: UNK
     Dates: start: 20120820
  12. PIPERACILLIN [Concomitant]
     Dosage: UNK
     Dates: start: 20120820
  13. TAZOBACTAM SODIUM [Concomitant]
     Dosage: UNK
     Dates: start: 20120820
  14. BETA BLOCKING AGENTS [Concomitant]
  15. ANTITHROMBOTIC AGENTS [Concomitant]
  16. CHOLESTEROL- AND TRIGLYCERIDE REDUCERS [Concomitant]
  17. ANTIARRHYTHMICS, CLASS I AND III [Concomitant]
  18. DIURETICS [Concomitant]
  19. ORGANIC NITRATES [Concomitant]
  20. ANGIOTENSIN II ANTAGONISTS [Concomitant]

REACTIONS (4)
  - Gastrointestinal haemorrhage [Recovered/Resolved]
  - Dizziness [Recovered/Resolved]
  - Pallor [Recovered/Resolved]
  - Hypotension [Recovered/Resolved]
